FAERS Safety Report 24557319 (Version 1)
Quarter: 2024Q4

REPORT INFORMATION
  Report Type: Spontaneous
  Country: US (occurrence: None)
  Receive Date: 20241028
  Receipt Date: 20241028
  Transmission Date: 20250114
  Serious: Yes (Other)
  Sender: Public
  Company Number: None

PATIENT
  Age: 64 Year
  Sex: Female
  Weight: 72 kg

DRUGS (15)
  1. VTAMA [Suspect]
     Active Substance: TAPINAROF
     Indication: Psoriasis
     Route: 061
  2. Hydroxy chloroquine [Concomitant]
  3. CYMBALTA [Concomitant]
     Active Substance: DULOXETINE HYDROCHLORIDE
  4. NYSTATIN [Concomitant]
     Active Substance: NYSTATIN
  5. KETOCONAZOLE [Concomitant]
     Active Substance: KETOCONAZOLE
  6. TRIAMCINOLONE [Concomitant]
     Active Substance: TRIAMCINOLONE
  7. Clobetasol cream and lotion [Concomitant]
  8. ALBUTEROL [Concomitant]
     Active Substance: ALBUTEROL
  9. PREVACID [Concomitant]
     Active Substance: LANSOPRAZOLE
  10. VITAMINS [Concomitant]
     Active Substance: VITAMINS
  11. VITAMIN D [Concomitant]
     Active Substance: VITAMIN D NOS
  12. GARLIC [Concomitant]
     Active Substance: GARLIC
  13. FISH OIL [Concomitant]
     Active Substance: FISH OIL
  14. PEPCID [Concomitant]
     Active Substance: FAMOTIDINE
  15. FOLIC ACID [Concomitant]
     Active Substance: FOLIC ACID

REACTIONS (3)
  - Plasma cell myeloma refractory [None]
  - Folliculitis [None]
  - Erythema [None]

NARRATIVE: CASE EVENT DATE: 20241027
